FAERS Safety Report 6990618-4 (Version None)
Quarter: 2010Q3

REPORT INFORMATION
  Report Type: 
  Country: None (occurrence: None)
  Receive Date: 20100916
  Receipt Date: 20100714
  Transmission Date: 20110219
  Serious: Yes (Life-Threatening, Other)
  Sender: FDA-Public Use
  Company Number: IE-PFIZER INC-2010060724

PATIENT
  Sex: Male
  Weight: 108 kg

DRUGS (10)
  1. LYRICA [Suspect]
     Indication: NEUROPATHY PERIPHERAL
     Dosage: 25 MG, 2X/DAY
     Route: 048
     Dates: start: 20080115, end: 20080101
  2. LYRICA [Suspect]
     Dosage: 50 MG, 2X/DAY
     Route: 048
     Dates: start: 20080101, end: 20080201
  3. LYRICA [Suspect]
     Dosage: 75 MG, 2X/DAY
     Route: 048
     Dates: start: 20080201, end: 20080201
  4. NEURONTIN [Concomitant]
     Indication: EPILEPSY
     Dosage: 300 MG, 1X/DAY AT NIGHT
     Route: 048
     Dates: start: 20080115, end: 20080129
  5. NSA [Concomitant]
     Dosage: 75 MG, UNK
     Route: 048
  6. FOLIC ACID [Concomitant]
     Dosage: 5 MG, UNK
     Route: 048
  7. QUININE SULFATE [Concomitant]
     Dosage: 300 MG, UNK
     Route: 048
  8. ZOTON [Concomitant]
     Dosage: 30 MG, UNK
  9. SERETIDE [Concomitant]
     Route: 055
  10. VENTOLIN [Concomitant]
     Route: 055

REACTIONS (9)
  - DECREASED APPETITE [None]
  - IRRITABILITY [None]
  - LOSS OF LIBIDO [None]
  - MOOD ALTERED [None]
  - NEGATIVE THOUGHTS [None]
  - POOR QUALITY SLEEP [None]
  - STRESS [None]
  - SUICIDAL IDEATION [None]
  - THINKING ABNORMAL [None]
